FAERS Safety Report 6258417-9 (Version None)
Quarter: 2009Q3

REPORT INFORMATION
  Report Type: 
  Country: None (occurrence: None)
  Receive Date: 20090707
  Receipt Date: 20090625
  Transmission Date: 20100115
  Serious: Yes (Hospitalization)
  Sender: FDA-Public Use
  Company Number: GB-PFIZER INC-2009231960

PATIENT
  Age: 43 Year

DRUGS (22)
  1. SPIRONOLACTONE [Suspect]
     Dosage: 50 MG, UNK
     Route: 048
     Dates: end: 20081013
  2. ACOMPLIA [Suspect]
     Indication: OBESITY
     Dosage: 20 MG, UNK
     Route: 048
     Dates: start: 20070629, end: 20081013
  3. IRBESARTAN [Suspect]
     Dosage: 150 MG, 1X/DAY
     Route: 048
     Dates: end: 20081013
  4. LISINOPRIL [Suspect]
     Dosage: 20 MG, 1X/DAY
     Route: 048
  5. ASPIRIN [Concomitant]
     Indication: CARDIAC DISORDER
     Dosage: 75 MG, 1X/DAY
  6. ATENOLOL [Concomitant]
     Dosage: 50 MG, 1X/DAY
  7. ATORVASTATIN [Concomitant]
     Dosage: 80 MG, 1X/DAY
  8. BISOPROLOL [Concomitant]
  9. CODEINE [Concomitant]
     Indication: MUSCLE SPASMS
     Dosage: 30 MG, 1X/DAY
  10. DILTIAZEM [Concomitant]
  11. FUROSEMIDE [Concomitant]
     Dosage: 40 MG, 1X/DAY
  12. GLYCERYL TRINITRATE [Concomitant]
     Indication: CARDIAC DISORDER
     Dosage: 400 UG, AS NEEDED
  13. ISOSORBIDE MONONITRATE [Concomitant]
     Dosage: 60 MG, 1.5/1DAY
  14. LIDOCAINE [Concomitant]
     Dosage: 2 %, UNK
  15. NITRAZEPAM [Concomitant]
     Dosage: 5 MG, SINGLE
  16. OMACOR [Concomitant]
     Route: 048
  17. OMEPRAZOLE [Concomitant]
     Dosage: 20 MG, 1X/DAY
  18. PARACETAMOL [Concomitant]
     Indication: MUSCLE SPASMS
     Dosage: 500 MG, 2X/DAY
  19. QUININE SULPHATE [Concomitant]
     Dosage: 300 MG, SINGLE
  20. SOLIFENACIN [Concomitant]
     Route: 048
  21. TRIMETHOPRIM [Concomitant]
     Indication: URINARY TRACT INFECTION
     Dosage: 100 MG, SINGLE
  22. VESICARE [Concomitant]
     Indication: BLADDER DISORDER
     Dosage: 5 MG, 1X/DAY

REACTIONS (14)
  - ANAL HAEMORRHAGE [None]
  - ATRIAL FIBRILLATION [None]
  - BACK PAIN [None]
  - CONSTIPATION [None]
  - DEHYDRATION [None]
  - FEAR OF EATING [None]
  - HYPERTENSION [None]
  - NAUSEA [None]
  - OEDEMA [None]
  - PYREXIA [None]
  - RENAL FAILURE [None]
  - RENAL PAIN [None]
  - VOMITING [None]
  - WEIGHT INCREASED [None]
